FAERS Safety Report 12327173 (Version 9)
Quarter: 2018Q3

REPORT INFORMATION
  Report Type: Report from Study
  Country: BR (occurrence: BR)
  Receive Date: 20160503
  Receipt Date: 20180801
  Transmission Date: 20181010
  Serious: Yes (Other)
  Sender: FDA-Public Use
  Company Number: PHHY2015BR116347

PATIENT
  Age: 69 Year
  Sex: Female
  Weight: 98 kg

DRUGS (7)
  1. SANDOSTATIN LAR DEPOT [Suspect]
     Active Substance: OCTREOTIDE ACETATE
     Dosage: 20 MG, QMO (EVERY 28 DAYS)
     Route: 030
     Dates: start: 201508
  2. SANDOSTATIN LAR DEPOT [Suspect]
     Active Substance: OCTREOTIDE ACETATE
     Dosage: 30 MG, QMO (ONCE A MONTH)
     Route: 030
  3. XARELTO [Concomitant]
     Active Substance: RIVAROXABAN
     Indication: COAGULOPATHY
     Dosage: UNK
     Route: 065
  4. CABERGOLINE. [Concomitant]
     Active Substance: CABERGOLINE
     Indication: ACROMEGALY
     Dosage: 0.5 MG, QOD
     Route: 065
  5. LOSARTAN. [Concomitant]
     Active Substance: LOSARTAN
     Indication: HYPERTENSION
     Dosage: UNK
     Route: 065
  6. SANDOSTATIN LAR DEPOT [Suspect]
     Active Substance: OCTREOTIDE ACETATE
     Dosage: 1 APPLICATION ONCE A MONTH
     Route: 030
     Dates: end: 201711
  7. SANDOSTATIN LAR DEPOT [Suspect]
     Active Substance: OCTREOTIDE ACETATE
     Indication: ACROMEGALY
     Dosage: 20 MG, QMO (EVERY 28 DAYS)
     Route: 030
     Dates: start: 2005

REACTIONS (21)
  - Breast cancer [Unknown]
  - Decreased immune responsiveness [Unknown]
  - Cardiomegaly [Unknown]
  - Alopecia [Unknown]
  - Anaphylactic shock [Unknown]
  - Sleep disorder [Unknown]
  - Concomitant disease aggravated [Unknown]
  - Memory impairment [Unknown]
  - Peripheral swelling [Unknown]
  - Eating disorder [Unknown]
  - Fatigue [Unknown]
  - Arrhythmia [Recovering/Resolving]
  - Disturbance in attention [Unknown]
  - Scab [Unknown]
  - Body height decreased [Unknown]
  - Influenza [Not Recovered/Not Resolved]
  - Pruritus [Unknown]
  - Weight decreased [Unknown]
  - Weight increased [Recovering/Resolving]
  - Apathy [Unknown]
  - Ocular discomfort [Unknown]

NARRATIVE: CASE EVENT DATE: 2016
